FAERS Safety Report 4983662-X (Version None)
Quarter: 2006Q2

REPORT INFORMATION
  Report Type: 
  Country: None (occurrence: None)
  Receive Date: 20060425
  Receipt Date: 20060425
  Transmission Date: 20061013
  Serious: Yes (Hospitalization)
  Sender: FDA-Public Use
  Company Number: None

PATIENT
  Age: 20 Year
  Sex: Female
  Weight: 63 kg

DRUGS (2)
  1. LAMICTAL [Suspect]
     Indication: BIPOLAR DISORDER
     Dosage: 25 DAILY PO
     Route: 048
     Dates: start: 20060301, end: 20060327
  2. LEXAPRO [Suspect]
     Dosage: 5 DAILY PO
     Route: 048

REACTIONS (7)
  - ANAPHYLACTOID REACTION [None]
  - DIPLOPIA [None]
  - KERATOPATHY [None]
  - STAPHYLOCOCCAL INFECTION [None]
  - STEVENS-JOHNSON SYNDROME [None]
  - TOXIC EPIDERMAL NECROLYSIS [None]
  - VISION BLURRED [None]
